FAERS Safety Report 25376582 (Version 1)
Quarter: 2025Q2

REPORT INFORMATION
  Report Type: Spontaneous
  Country: US (occurrence: US)
  Receive Date: 20250530
  Receipt Date: 20250530
  Transmission Date: 20250717
  Serious: Yes (Hospitalization, Other)
  Sender: NOVITIUM PHARMA
  Company Number: US-NOVITIUMPHARMA-2025USNVP01237

PATIENT
  Age: 69 Year
  Sex: Male

DRUGS (10)
  1. PREDNISONE [Suspect]
     Active Substance: PREDNISONE
     Indication: Prophylaxis against transplant rejection
  2. METHYLPREDNISOLONE SODIUM SUCCINATE [Concomitant]
     Active Substance: METHYLPREDNISOLONE SODIUM SUCCINATE
     Route: 042
  3. BASILIXIMAB [Concomitant]
     Active Substance: BASILIXIMAB
  4. TACROLIMUS [Concomitant]
     Active Substance: TACROLIMUS
  5. TACROLIMUS [Concomitant]
     Active Substance: TACROLIMUS
  6. MYCOPHENOLATE MOFETIL [Concomitant]
     Active Substance: MYCOPHENOLATE MOFETIL
  7. MYCOPHENOLATE MOFETIL [Concomitant]
     Active Substance: MYCOPHENOLATE MOFETIL
  8. DOXORUBICIN [Concomitant]
     Active Substance: DOXORUBICIN
     Indication: Product used for unknown indication
  9. Immune globulin [Concomitant]
     Indication: Product used for unknown indication
     Route: 042
  10. EVEROLIMUS [Concomitant]
     Active Substance: EVEROLIMUS
     Indication: Product used for unknown indication

REACTIONS (3)
  - Cytomegalovirus viraemia [Recovering/Resolving]
  - Human herpesvirus 8 infection [Recovering/Resolving]
  - Kaposi^s sarcoma [Unknown]
